FAERS Safety Report 15607396 (Version 3)
Quarter: 2018Q4

REPORT INFORMATION
  Report Type: Report from Study
  Country: None (occurrence: CH)
  Receive Date: 20181112
  Receipt Date: 20181126
  Transmission Date: 20190205
  Serious: Yes (Hospitalization)
  Sender: FDA-Public Use
  Company Number: CH-ABBVIE-18S-151-2549744-00

PATIENT
  Sex: Female

DRUGS (4)
  1. DUODOPA [Suspect]
     Active Substance: CARBIDOPA\LEVODOPA
     Dosage: MD: 9ML, CD: 3.8ML/H, ED: 1ML, 16H THERAPY
     Route: 050
     Dates: start: 20171129, end: 20180130
  2. DUODOPA [Suspect]
     Active Substance: CARBIDOPA\LEVODOPA
     Indication: PARKINSON^S DISEASE
     Route: 050
     Dates: start: 20170522, end: 20171129
  3. DUODOPA [Suspect]
     Active Substance: CARBIDOPA\LEVODOPA
     Route: 050
  4. DUODOPA [Suspect]
     Active Substance: CARBIDOPA\LEVODOPA
     Dosage: MD: 9ML, CD: 3.9ML/H, ED: 1ML, 16H THERAPY
     Route: 050
     Dates: start: 20180130

REACTIONS (3)
  - Parkinson^s disease [Unknown]
  - Dementia [Unknown]
  - Urinary incontinence [Unknown]
